FAERS Safety Report 8160566-5 (Version None)
Quarter: 2012Q1

REPORT INFORMATION
  Report Type: 
  Country: None (occurrence: None)
  Receive Date: 20120223
  Receipt Date: 20120215
  Transmission Date: 20120608
  Serious: Yes (Other)
  Sender: FDA-Public Use
  Company Number: US-ELI_LILLY_AND_COMPANY-US201202004533

PATIENT
  Age: 67 Year
  Sex: Male
  Weight: 73.016 kg

DRUGS (14)
  1. GLIMEPIRIDE [Concomitant]
     Indication: TYPE 2 DIABETES MELLITUS
     Dosage: 2 MG, QD
     Route: 048
  2. LIPITOR [Concomitant]
     Dosage: 20 UG, QD
     Route: 048
  3. ACYCLOVIR [Concomitant]
     Dosage: 400 MG, PRN
     Route: 048
  4. BYETTA [Suspect]
     Indication: TYPE 2 DIABETES MELLITUS
     Dosage: 5 UG, BID
     Route: 058
     Dates: start: 20071016, end: 20080204
  5. QUINAPRIL [Concomitant]
     Dosage: 20 MG, QD
     Route: 048
  6. METOPROLOL TARTRATE [Concomitant]
     Dosage: 25 MG, QD
     Route: 048
  7. LEVITRA [Concomitant]
     Dosage: 20 MG, PRN
     Route: 048
  8. PLAVIX [Concomitant]
     Dosage: 75 MG, UNKNOWN
     Route: 048
  9. PAXIL [Concomitant]
     Dosage: 20 MG, QD
     Route: 048
  10. CIALIS [Concomitant]
     Dosage: UNK
     Route: 048
  11. MUCINEX [Concomitant]
     Dosage: UNK, PRN
     Route: 048
  12. ALLEGRA [Concomitant]
     Dosage: 60 MG, PRN
     Route: 048
  13. BYETTA [Suspect]
     Dosage: 10 UG, BID
     Route: 058
     Dates: start: 20080204, end: 20111201
  14. ASPIRIN [Concomitant]
     Dosage: 325 MG, UNKNOWN
     Route: 048

REACTIONS (5)
  - PANCREATIC CARCINOMA [None]
  - DUODENITIS [None]
  - DYSPHAGIA [None]
  - RETCHING [None]
  - GASTRITIS [None]
